FAERS Safety Report 20813688 (Version 1)
Quarter: 2022Q2

REPORT INFORMATION
  Report Type: Spontaneous
  Country: US (occurrence: None)
  Receive Date: 20220510
  Receipt Date: 20220510
  Transmission Date: 20220721
  Serious: Yes (Other)
  Sender: FDA-Public Use
  Company Number: None

PATIENT
  Age: 17 Year
  Sex: Male
  Weight: 69.4 kg

DRUGS (22)
  1. ABATACEPT [Suspect]
     Active Substance: ABATACEPT
     Indication: Prophylaxis against graft versus host disease
     Dosage: OTHER FREQUENCY : 2 DOSES;?
     Route: 042
     Dates: start: 20220414
  2. acyclovir (ZOVIRAX) 434 mg in dextrose 5 % 62 mL (7 mg/mL) IV [Concomitant]
  3. alteplase (CATHFLO) injection 2 mg **FOLLOWED BY** alteplase (CATHFLO) [Concomitant]
  4. Clinician Bolus PRN: HYDROmorphone (DILAUDID) bolus 0.26 mg [Concomitant]
  5. diphenhydrAMINE (BENADRYL) injection 25 mg [Concomitant]
  6. diphenhydramine/lidocaine/sodium bicarbonate (MAGIC MOUTH WASH - ADULT [Concomitant]
  7. famotidine (PEPCID) injection 20 mg [Concomitant]
  8. granisetron (KYTRIL) injection 1 mg [Concomitant]
  9. heparin flush 10 UNIT/ML injection 30 Units [Concomitant]
  10. hydrophor (AQUAPHOR) external ointment [Concomitant]
  11. ketamine (KETALAR) 100 mg in sodium chloride 0.9 % 100 mL (1 mg/mL) in [Concomitant]
  12. levETIRAcetam (KEPPRA) 1,365 mg in sodium chloride 0.9 % 91 mL (15 mg/ [Concomitant]
  13. Lipid emulsion injectable 20% (INTRAlipid/Nutrilipid, soy based) infus [Concomitant]
  14. Lipid emulsion injectable 20% (INTRAlipid/Nutrilipid, soy based) infus [Concomitant]
  15. lorazepam (ATIVAN) 2 MG/ML injection 0.76 mg [Concomitant]
  16. micafungin (MYCAMINE) 49.5 mg in sodium chloride 0.9 % 33 mL (1.5 mg/m [Concomitant]
  17. naloxone (NARCAN) 400 mcg in sodium chloride 0.9 % 50 mL (8 mcg/mL) in [Concomitant]
  18. nystatin (MYCOSTATIN) 100000 UNIT/ML suspension 400,000 Units [Concomitant]
  19. olanzapine (ZYPREXA) tablet 5 mg [Concomitant]
  20. pantoprazole (PROTONIX) 40 mg/50 mL IVPB in NS (0.8 mg/mL) (neo/ped) [Concomitant]
  21. PCA HYDROmorphone 0.2 mg/mL in sodium chloride 0.9% 100 mL (DEMAND ONL [Concomitant]
  22. tacrolimus (PROGRAF) 2.5 mg in sodium chloride 0.9 % 250 mL (0.01 mg/m [Concomitant]

REACTIONS (2)
  - Staphylococcal sepsis [None]
  - Tachycardia [None]

NARRATIVE: CASE EVENT DATE: 20220423
